FAERS Safety Report 4353597-4 (Version None)
Quarter: 2004Q2

REPORT INFORMATION
  Report Type: 
  Country: None (occurrence: None)
  Receive Date: 20040430
  Receipt Date: 20040416
  Transmission Date: 20050107
  Serious: Yes (Death, Other)
  Sender: FDA-Public Use
  Company Number: 2004025777

PATIENT
  Sex: Male

DRUGS (1)
  1. VIAGRA [Suspect]
     Indication: PULMONARY HYPERTENSION
     Dosage: 100 MG (BID), ORAL
     Route: 048

REACTIONS (3)
  - ASCITES [None]
  - PULMONARY OEDEMA [None]
  - VENA CAVA THROMBOSIS [None]
